FAERS Safety Report 7939996-X (Version None)
Quarter: 2011Q4

REPORT INFORMATION
  Report Type: 
  Country: None (occurrence: None)
  Receive Date: 20111125
  Receipt Date: 20111122
  Transmission Date: 20120403
  Serious: No
  Sender: FDA-Public Use
  Company Number: US-PFIZER INC-2011285957

PATIENT
  Sex: Female
  Weight: 60.317 kg

DRUGS (9)
  1. OMEPRAZOLE [Concomitant]
     Indication: GASTRIC PERFORATION
     Dosage: UNK
  2. LEVOSALBUTAMOL [Concomitant]
     Dosage: UNK
  3. LIPITOR [Suspect]
     Indication: CARDIAC DISORDER
  4. LEVOXYL [Concomitant]
     Dosage: UNK
  5. LIPITOR [Suspect]
     Indication: BLOOD CHOLESTEROL INCREASED
     Dosage: 40 MG, 1X/DAY
     Route: 048
     Dates: start: 20101201, end: 20111111
  6. SPIRIVA [Concomitant]
     Dosage: UNK
  7. XOPENEX [Concomitant]
     Dosage: UNK
  8. XANAX [Concomitant]
     Dosage: UNK
  9. BENAZEPRIL [Concomitant]
     Dosage: UNK

REACTIONS (2)
  - DYSPHAGIA [None]
  - FOREIGN BODY [None]
